FAERS Safety Report 4764961-3 (Version None)
Quarter: 2005Q3

REPORT INFORMATION
  Report Type: 
  Country: None (occurrence: None)
  Receive Date: 20050909
  Receipt Date: 20050603
  Transmission Date: 20060218
  Serious: Yes (Hospitalization)
  Sender: FDA-Public Use
  Company Number: US-ROCHE-406952

PATIENT
  Age: 53 Year
  Sex: Male
  Weight: 68.5 kg

DRUGS (4)
  1. PEGASYS [Suspect]
     Indication: HEPATITIS C
     Route: 058
     Dates: start: 20050510, end: 20050510
  2. COPEGUS [Suspect]
     Indication: HEPATITIS C
     Dosage: 400 MG AT 09:00, 600 MG AT 21:00.
     Route: 048
     Dates: start: 20050510, end: 20050517
  3. COMBIVIR [Concomitant]
     Route: 048
     Dates: start: 20000609, end: 20050524
  4. SUSTIVA [Concomitant]
     Dosage: AT BEDTIME.
     Route: 048
     Dates: start: 20040520, end: 20050524

REACTIONS (7)
  - ANAEMIA [None]
  - HAEMATURIA [None]
  - HYPERKALAEMIA [None]
  - LIVER FUNCTION TEST ABNORMAL [None]
  - RENAL FAILURE [None]
  - TRANSAMINASES INCREASED [None]
  - WHITE BLOOD CELL COUNT DECREASED [None]
